APPROVED DRUG PRODUCT: PREVALITE
Active Ingredient: CHOLESTYRAMINE
Strength: EQ 4GM RESIN/SCOOPFUL
Dosage Form/Route: POWDER;ORAL
Application: A073263 | Product #002 | TE Code: AB
Applicant: AIPING PHARMACEUTICAL INC
Approved: Oct 30, 1997 | RLD: No | RS: No | Type: RX